FAERS Safety Report 14160164 (Version 2)
Quarter: 2019Q4

REPORT INFORMATION
  Report Type: Report from Study
  Country: CO (occurrence: CO)
  Receive Date: 20171103
  Receipt Date: 20191206
  Transmission Date: 20200122
  Serious: Yes (Life-Threatening, Other)
  Sender: FDA-Public Use
  Company Number: PHHY2017CO161468

PATIENT
  Age: 56 Year
  Sex: Male
  Weight: 68 kg

DRUGS (2)
  1. REVOLADE [Suspect]
     Active Substance: ELTROMBOPAG
     Indication: IMMUNE THROMBOCYTOPENIC PURPURA
     Dosage: 25 MG, QD
     Route: 048
     Dates: start: 201602
  2. REVOLADE [Suspect]
     Active Substance: ELTROMBOPAG
     Dosage: 50 MG, QD
     Route: 048

REACTIONS (14)
  - Mean cell haemoglobin concentration increased [Unknown]
  - Monocyte count increased [Unknown]
  - Bone marrow failure [Unknown]
  - Mean platelet volume increased [Unknown]
  - Lymphocyte count increased [Recovering/Resolving]
  - Feeling abnormal [Unknown]
  - Red blood cell count decreased [Unknown]
  - Platelet count decreased [Unknown]
  - Basophil count increased [Unknown]
  - Blood immunoglobulin E increased [Unknown]
  - Megakaryocytes abnormal [Unknown]
  - Influenza [Unknown]
  - Stress [Unknown]
  - White blood cell count decreased [Recovering/Resolving]

NARRATIVE: CASE EVENT DATE: 201707
